FAERS Safety Report 6964424-0 (Version None)
Quarter: 2010Q3

REPORT INFORMATION
  Report Type: 
  Country: None (occurrence: None)
  Receive Date: 20100903
  Receipt Date: 20100823
  Transmission Date: 20110219
  Serious: Yes (Other)
  Sender: FDA-Public Use
  Company Number: AU-PFIZER INC-2010105572

PATIENT
  Sex: Male

DRUGS (1)
  1. ZOLOFT [Suspect]
     Dosage: UNK
     Dates: start: 20020101, end: 20060101

REACTIONS (8)
  - ABNORMAL BEHAVIOUR [None]
  - DISINHIBITION [None]
  - DRUG TOXICITY [None]
  - JUDGEMENT IMPAIRED [None]
  - MANIA [None]
  - SEXUAL ABUSE [None]
  - SEXUALLY INAPPROPRIATE BEHAVIOUR [None]
  - SPEECH DISORDER [None]
